FAERS Safety Report 17867647 (Version 3)
Quarter: 2023Q4

REPORT INFORMATION
  Report Type: Spontaneous
  Country: FR (occurrence: FR)
  Receive Date: 20200605
  Receipt Date: 20231121
  Transmission Date: 20240109
  Serious: Yes (Life-Threatening)
  Sender: FDA-Public Use
  Company Number: None

PATIENT
  Age: 67 Year
  Sex: Male
  Weight: 90 kg

DRUGS (8)
  1. REMIFENTANIL [Suspect]
     Active Substance: REMIFENTANIL
     Indication: Anaesthesia
     Dosage: UNK
     Route: 042
     Dates: start: 20200103, end: 20200103
  2. CISATRACURIUM BESYLATE [Suspect]
     Active Substance: CISATRACURIUM BESYLATE
     Indication: Anaesthesia
     Dosage: UNK
     Route: 042
     Dates: start: 20200103, end: 20200103
  3. LIDOCAINE [Suspect]
     Active Substance: LIDOCAINE
     Indication: Anaesthesia
     Dosage: UNK
     Route: 042
     Dates: start: 20200103, end: 20200103
  4. TRANEXAMIC ACID [Suspect]
     Active Substance: TRANEXAMIC ACID
     Indication: Anaesthesia
     Dosage: UNK
     Route: 042
     Dates: start: 20200103, end: 20200103
  5. HEPARIN SODIUM [Suspect]
     Active Substance: HEPARIN SODIUM
     Indication: Thrombosis prophylaxis
     Dosage: UNK
     Route: 051
     Dates: start: 20200103, end: 20200103
  6. KETAMINE [Suspect]
     Active Substance: KETAMINE
     Indication: Anaesthesia
     Dosage: UNK
     Route: 042
     Dates: start: 20200103, end: 20200103
  7. PROPOFOL [Suspect]
     Active Substance: PROPOFOL
     Indication: Anaesthesia
     Dosage: UNK
     Route: 042
     Dates: start: 20200103, end: 20200103
  8. VANCOMYCIN [Concomitant]
     Active Substance: VANCOMYCIN
     Dosage: UNK
     Route: 042
     Dates: start: 20200103, end: 20200103

REACTIONS (1)
  - Anaphylactic reaction [Recovered/Resolved]

NARRATIVE: CASE EVENT DATE: 20200103
